FAERS Safety Report 19788302 (Version 2)
Quarter: 2021Q4

REPORT INFORMATION
  Report Type: Report from Study
  Country: CN (occurrence: CN)
  Receive Date: 20210903
  Receipt Date: 20211215
  Transmission Date: 20220303
  Serious: Yes (Hospitalization, Other)
  Sender: FDA-Public Use
  Company Number: CN-NOVARTISPH-NVSC2021CN180285

PATIENT
  Sex: Female
  Weight: 48 kg

DRUGS (5)
  1. ZYKADIA [Suspect]
     Active Substance: CERITINIB
     Indication: Non-small cell lung cancer
     Dosage: 450 MG
     Route: 048
     Dates: start: 20200921, end: 2021
  2. ZYKADIA [Suspect]
     Active Substance: CERITINIB
     Dosage: 450 MG
     Route: 048
     Dates: start: 202105
  3. ZYKADIA [Suspect]
     Active Substance: CERITINIB
     Dosage: 300 MG
     Route: 048
  4. ZYKADIA [Suspect]
     Active Substance: CERITINIB
     Dosage: 150 MG
     Route: 048
     Dates: start: 2021
  5. ZYKADIA [Suspect]
     Active Substance: CERITINIB
     Dosage: 150MG-300MG/DAY (SELF PURCHASED DRUGS)
     Route: 065

REACTIONS (9)
  - Osteoporosis [Not Recovered/Not Resolved]
  - Lumbar vertebral fracture [Not Recovered/Not Resolved]
  - Thoracic vertebral fracture [Not Recovered/Not Resolved]
  - Plasma cell myeloma [Unknown]
  - Lung adenocarcinoma stage III [Unknown]
  - Intervertebral disc protrusion [Unknown]
  - Lumbar spinal stenosis [Unknown]
  - Diarrhoea [Recovering/Resolving]
  - Rash [Recovered/Resolved]

NARRATIVE: CASE EVENT DATE: 20210101
